FAERS Safety Report 11324511 (Version 2)
Quarter: 2015Q3

REPORT INFORMATION
  Report Type: Report from Study
  Country: US (occurrence: US)
  Receive Date: 20150730
  Receipt Date: 20150828
  Transmission Date: 20151125
  Serious: Yes (Hospitalization, Other)
  Sender: FDA-Public Use
  Company Number: US-GILEAD-2015-0165223

PATIENT
  Age: 70 Year
  Sex: Female

DRUGS (3)
  1. AMBRISENTAN [Suspect]
     Active Substance: AMBRISENTAN
     Indication: PRODUCT USED FOR UNKNOWN INDICATION
     Dosage: 5 MG, QD
     Route: 065
     Dates: start: 20121228
  2. OXYGEN. [Concomitant]
     Active Substance: OXYGEN
  3. PREDNISONE. [Concomitant]
     Active Substance: PREDNISONE

REACTIONS (8)
  - Clostridium difficile infection [Unknown]
  - Weight decreased [Unknown]
  - Dizziness [Unknown]
  - Pericardial effusion [Unknown]
  - Diarrhoea [Unknown]
  - Oxygen supplementation [Unknown]
  - Heart rate increased [Unknown]
  - Vomiting [Unknown]
